FAERS Safety Report 9149329 (Version 1)
Quarter: 2013Q1

REPORT INFORMATION
  Report Type: Spontaneous
  Country: US (occurrence: None)
  Receive Date: 20130301
  Receipt Date: 20130301
  Transmission Date: 20140127
  Serious: No
  Sender: FDA-Public Use
  Company Number: None

PATIENT
  Age: 22 Year
  Sex: Male

DRUGS (2)
  1. APLISOL [Suspect]
     Dosage: R. F.A 0.1 ML I.D.
     Dates: start: 20121113
  2. FLUARIX [Suspect]
     Dosage: L DELTOID 0.5 ML IM
     Dates: start: 20121113

REACTIONS (4)
  - Injection site pruritus [None]
  - Hyperhidrosis [None]
  - Dry mouth [None]
  - Flushing [None]
